FAERS Safety Report 6551461-3 (Version None)
Quarter: 2010Q1

REPORT INFORMATION
  Report Type: 
  Country: None (occurrence: None)
  Receive Date: 20100126
  Receipt Date: 20100116
  Transmission Date: 20100710
  Serious: Yes (Other)
  Sender: FDA-Public Use
  Company Number: GB-NOVOPROD-303341

PATIENT
  Sex: Female

DRUGS (4)
  1. NOVOLOG [Suspect]
     Indication: TYPE 1 DIABETES MELLITUS
     Dosage: 25 IU, QD (7+7+11)
     Route: 058
  2. NOVOLOG [Suspect]
     Dosage: 27 IU, QD (7+8+12)
     Route: 058
     Dates: start: 20100113
  3. NOVOLOG [Suspect]
     Dosage: 25 IU, QD (7+7+11)
     Route: 058
     Dates: start: 20100114
  4. LEVEMIR [Suspect]
     Indication: TYPE 1 DIABETES MELLITUS
     Dosage: 26 IU, QD
     Route: 058

REACTIONS (3)
  - BLOOD GLUCOSE FLUCTUATION [None]
  - DRUG EXPOSURE DURING PREGNANCY [None]
  - INTRA-UTERINE DEATH [None]
